FAERS Safety Report 8860058 (Version 1)
Quarter: 2012Q4

REPORT INFORMATION
  Report Type: 
  Country: US (occurrence: US)
  Receive Date: 20121025
  Receipt Date: 20121025
  Transmission Date: 20130627
  Serious: No
  Sender: FDA-Public Use
  Company Number: US-BIOGENIDEC-2012BI042629

PATIENT
  Age: 35 Year
  Sex: Female

DRUGS (9)
  1. TYSABRI [Suspect]
     Indication: MULTIPLE SCLEROSIS
     Route: 042
     Dates: start: 2007, end: 2009
  2. TYSABRI [Suspect]
     Indication: MULTIPLE SCLEROSIS
     Route: 042
     Dates: start: 20111212, end: 20120723
  3. BACLOFEN [Concomitant]
     Indication: MUSCLE SPASMS
     Dates: start: 2002, end: 2009
  4. PROZAC [Concomitant]
     Indication: DEPRESSION
     Dates: start: 2002, end: 2009
  5. FOCALIN [Concomitant]
     Indication: FATIGUE
     Dates: start: 2006, end: 2009
  6. MEDICATION (NOS) [Concomitant]
     Indication: GESTATIONAL DIABETES
     Dates: start: 2009, end: 2010
  7. BACLOFEN [Concomitant]
     Indication: MUSCLE SPASMS
     Dates: start: 2010
  8. PROZAC [Concomitant]
     Indication: DEPRESSION
     Dates: start: 2010
  9. FOCALIN [Concomitant]
     Indication: FATIGUE
     Dates: start: 2010

REACTIONS (5)
  - Fatigue [Recovered/Resolved]
  - Muscle spasms [Recovered/Resolved]
  - Back pain [Recovered/Resolved]
  - Decreased interest [Recovered/Resolved]
  - Multiple sclerosis relapse [Recovered/Resolved]
